FAERS Safety Report 5177188-0 (Version None)
Quarter: 2006Q4

REPORT INFORMATION
  Report Type: 
  Country: None (occurrence: None)
  Receive Date: 20061218
  Receipt Date: 20061211
  Transmission Date: 20070319
  Serious: Yes (Hospitalization)
  Sender: FDA-Public Use
  Company Number: US-BRISTOL-MYERS SQUIBB COMPANY-13608468

PATIENT
  Age: 49 Year
  Sex: Female
  Weight: 111 kg

DRUGS (4)
  1. CETUXIMAB [Suspect]
     Indication: NEOPLASM MALIGNANT
     Route: 042
     Dates: start: 20061120, end: 20061120
  2. CARBOPLATIN [Suspect]
     Indication: NEOPLASM MALIGNANT
     Route: 042
     Dates: start: 20061120, end: 20061120
  3. PACLITAXEL [Suspect]
     Indication: NEOPLASM MALIGNANT
     Route: 042
     Dates: start: 20061120, end: 20061120
  4. RADIATION THERAPY [Suspect]
     Indication: NEOPLASM MALIGNANT
     Dates: start: 20061023, end: 20061122

REACTIONS (6)
  - DEHYDRATION [None]
  - DERMATITIS [None]
  - FATIGUE [None]
  - INFECTION [None]
  - NAUSEA [None]
  - VOMITING [None]
